FAERS Safety Report 18535900 (Version 1)
Quarter: 2020Q4

REPORT INFORMATION
  Report Type: Spontaneous
  Country: US (occurrence: US)
  Receive Date: 20201123
  Receipt Date: 20201123
  Transmission Date: 20210114
  Serious: No
  Sender: FDA-Public Use
  Company Number: US-BIOGEN-2020BI00947178

PATIENT
  Sex: Female

DRUGS (2)
  1. TECFIDERA [Suspect]
     Active Substance: DIMETHYL FUMARATE
     Indication: MULTIPLE SCLEROSIS
     Dosage: MAINTENANCE DOSE
     Route: 065
     Dates: start: 20150129
  2. TECFIDERA [Suspect]
     Active Substance: DIMETHYL FUMARATE
     Route: 065

REACTIONS (3)
  - Product dose omission issue [Not Recovered/Not Resolved]
  - Pruritus [Not Recovered/Not Resolved]
  - Flushing [Not Recovered/Not Resolved]
